FAERS Safety Report 6432970-4 (Version None)
Quarter: 2009Q4

REPORT INFORMATION
  Report Type: 
  Country: None (occurrence: None)
  Receive Date: 20091109
  Receipt Date: 20091026
  Transmission Date: 20100525
  Serious: Yes (Other)
  Sender: FDA-Public Use
  Company Number: IN-ELI_LILLY_AND_COMPANY-IN200910006625

PATIENT
  Sex: Female

DRUGS (1)
  1. FORTEO [Suspect]
     Indication: OSTEOPOROSIS
     Dosage: 20 UG, DAILY (1/D)
     Route: 058
     Dates: start: 20090101

REACTIONS (2)
  - BLOOD PARATHYROID HORMONE INCREASED [None]
  - HYPERPARATHYROIDISM [None]
